FAERS Safety Report 23397322 (Version 1)
Quarter: 2024Q1

REPORT INFORMATION
  Report Type: Report from Study
  Country: US (occurrence: US)
  Receive Date: 20240112
  Receipt Date: 20240112
  Transmission Date: 20240410
  Serious: Yes (Death)
  Sender: FDA-Public Use
  Company Number: US-ABBVIE-5576829

PATIENT
  Sex: Male
  Weight: 83.914 kg

DRUGS (1)
  1. CREON [Suspect]
     Active Substance: PANCRELIPASE AMYLASE\PANCRELIPASE LIPASE\PANCRELIPASE PROTEASE
     Indication: Pancreatic carcinoma
     Dosage: 3 CAPSULES OF CREON WITH MEALS AND 1 CAPSULE WITH SNACK?FORM STRENGTH: 36000 UNIT
     Route: 048
     Dates: start: 202301, end: 202310

REACTIONS (4)
  - Acute respiratory failure [Fatal]
  - Aspiration [Fatal]
  - Sepsis [Fatal]
  - Unevaluable event [Fatal]
